FAERS Safety Report 4351226-7 (Version None)
Quarter: 2004Q2

REPORT INFORMATION
  Report Type: 
  Country: None (occurrence: None)
  Receive Date: 20040430
  Receipt Date: 20040430
  Transmission Date: 20050107
  Serious: Yes (Hospitalization)
  Sender: FDA-Public Use
  Company Number: None

PATIENT
  Age: 58 Year
  Sex: Male
  Weight: 74.8435 kg

DRUGS (9)
  1. CARBOPLATIN [Suspect]
     Indication: SMALL CELL LUNG CANCER STAGE UNSPECIFIED
     Dosage: 250 MG
     Dates: start: 20040415
  2. CARBOPLATIN [Suspect]
     Indication: SMALL CELL LUNG CANCER STAGE UNSPECIFIED
     Dosage: 250 MG
     Dates: start: 20040422
  3. TOPOTECAN [Suspect]
     Indication: SMALL CELL LUNG CANCER STAGE UNSPECIFIED
     Dosage: 4.7 MG C1D1, C1D8
     Dates: start: 20040415
  4. TOPOTECAN [Suspect]
     Indication: SMALL CELL LUNG CANCER STAGE UNSPECIFIED
     Dosage: 4.7 MG C1D1, C1D8
     Dates: start: 20040422
  5. ATACAND [Concomitant]
  6. ACIPHEX [Concomitant]
  7. PREDNISONE [Concomitant]
  8. FLOVENT [Concomitant]
  9. COMBIVENT [Concomitant]

REACTIONS (1)
  - PNEUMONIA [None]
